FAERS Safety Report 22784611 (Version 5)
Quarter: 2024Q1

REPORT INFORMATION
  Report Type: Report from Study
  Country: US (occurrence: US)
  Receive Date: 20230804
  Receipt Date: 20240131
  Transmission Date: 20240410
  Serious: No
  Sender: FDA-Public Use
  Company Number: US-ACADIA PHARMACEUTICALS INC.-ACA-2023-TRF-002891

PATIENT
  Sex: Female

DRUGS (13)
  1. DAYBUE [Suspect]
     Active Substance: TROFINETIDE
     Indication: Rett syndrome
     Dosage: UNK
  2. DAYBUE [Suspect]
     Active Substance: TROFINETIDE
     Dosage: 40 MILLILITER, BID
  3. DAYBUE [Suspect]
     Active Substance: TROFINETIDE
     Dosage: UNK
     Dates: end: 20230805
  4. DAYBUE [Suspect]
     Active Substance: TROFINETIDE
     Dosage: 30 MILLILITER, BID
  5. DAYBUE [Suspect]
     Active Substance: TROFINETIDE
     Dosage: TITRATED UP
  6. DAYBUE [Suspect]
     Active Substance: TROFINETIDE
     Dosage: 40 MILLILITER, BID VIA G-TUBE
     Dates: end: 20230924
  7. DAYBUE [Suspect]
     Active Substance: TROFINETIDE
     Dosage: 50 MILLILITER, BID VIA G-TUBE
     Dates: end: 202311
  8. BACLOFEN [Concomitant]
     Active Substance: BACLOFEN
  9. CLONIDINE [Concomitant]
     Active Substance: CLONIDINE
  10. MELATONIN [Concomitant]
     Active Substance: MELATONIN
  11. CLONAZEPAM [Concomitant]
     Active Substance: CLONAZEPAM
  12. BELSOMRA [Concomitant]
     Active Substance: SUVOREXANT
  13. TYLENOL [Concomitant]
     Active Substance: ACETAMINOPHEN

REACTIONS (8)
  - Rash [Not Recovered/Not Resolved]
  - Underdose [Not Recovered/Not Resolved]
  - Agitation [Not Recovered/Not Resolved]
  - Screaming [Unknown]
  - Psychomotor hyperactivity [Not Recovered/Not Resolved]
  - Hypersomnia [Unknown]
  - Diarrhoea [Recovered/Resolved]
  - Diarrhoea [Not Recovered/Not Resolved]
